FAERS Safety Report 17879649 (Version 1)
Quarter: 2020Q2

REPORT INFORMATION
  Report Type: Spontaneous
  Country: IN (occurrence: IN)
  Receive Date: 20200610
  Receipt Date: 20200610
  Transmission Date: 20200714
  Serious: Yes (Life-Threatening, Hospitalization, Other)
  Sender: FDA-Public Use
  Company Number: IN-ACCORD-184995

PATIENT
  Age: 45 Year
  Sex: Female

DRUGS (5)
  1. CARBOPLATIN. [Suspect]
     Active Substance: CARBOPLATIN
     Indication: OVARIAN CANCER STAGE III
     Dates: start: 201603
  2. CARBOPLATIN. [Suspect]
     Active Substance: CARBOPLATIN
     Indication: OVARIAN CANCER STAGE III
     Dates: start: 201503
  3. GEMCITABINE. [Concomitant]
     Active Substance: GEMCITABINE
     Indication: OVARIAN CANCER STAGE III
  4. DOXORUBICIN [Suspect]
     Active Substance: DOXORUBICIN
     Indication: OVARIAN CANCER STAGE III
     Dates: start: 201603
  5. CARBOPLATIN. [Suspect]
     Active Substance: CARBOPLATIN
     Indication: OVARIAN CANCER STAGE III

REACTIONS (2)
  - Acute megakaryocytic leukaemia [Unknown]
  - Cough [Unknown]

NARRATIVE: CASE EVENT DATE: 201709
